FAERS Safety Report 21559102 (Version 3)
Quarter: 2022Q4

REPORT INFORMATION
  Report Type: Report from Study
  Country: US (occurrence: None)
  Receive Date: 20221107
  Receipt Date: 20221212
  Transmission Date: 20230113
  Serious: Yes (Death, Hospitalization)
  Sender: FDA-Public Use
  Company Number: US-ROCHE-3213880

PATIENT
  Age: 72 Year
  Sex: Male
  Weight: 116 kg

DRUGS (7)
  1. VENETOCLAX [Suspect]
     Active Substance: VENETOCLAX
     Indication: Chronic lymphocytic leukaemia
     Dosage: DAY 1 TO 7 CYCLE 3
     Route: 048
     Dates: start: 20210823
  2. VENETOCLAX [Suspect]
     Active Substance: VENETOCLAX
     Dosage: DAYS 8 TO 14, CYCLE 3
     Route: 048
  3. VENETOCLAX [Suspect]
     Active Substance: VENETOCLAX
     Dosage: DAYS 15 TO 21, CYCLE 3
     Route: 048
  4. VENETOCLAX [Suspect]
     Active Substance: VENETOCLAX
     Dosage: DAYS 22 TO 28, CYCLE 3
     Route: 048
  5. VENETOCLAX [Suspect]
     Active Substance: VENETOCLAX
     Dosage: DAYS 1 TO 28, CYCLES 4 TO 14
     Route: 048
  6. OBINUTUZUMAB [Suspect]
     Active Substance: OBINUTUZUMAB
     Indication: Chronic lymphocytic leukaemia
     Dosage: CYCLE 1 DAY 1, 900 MG ON CYCLE 1 DAY 2, 1000 MG ON CYCLE 1 DAY 8 AND CYCLE 1 DAY 15, CYCLE 2 TO 6 DA
     Route: 042
     Dates: start: 20210823
  7. IBRUTINIB [Suspect]
     Active Substance: IBRUTINIB
     Indication: Chronic lymphocytic leukaemia
     Dosage: 15 CYCLES. PATIENT OFF PROTOCOL THERAPY SINCE 10/JAN/2022
     Route: 048
     Dates: start: 20210823

REACTIONS (4)
  - Cardiac failure [Recovered/Resolved]
  - COVID-19 pneumonia [Recovered/Resolved]
  - Atrial fibrillation [Recovered/Resolved]
  - COVID-19 pneumonia [Fatal]

NARRATIVE: CASE EVENT DATE: 20211216
